FAERS Safety Report 4578498-8 (Version None)
Quarter: 2005Q1

REPORT INFORMATION
  Report Type: 
  Country: None (occurrence: None)
  Receive Date: 20050209
  Receipt Date: 20050121
  Transmission Date: 20050727
  Serious: Yes (Hospitalization, Other)
  Sender: FDA-Public Use
  Company Number: USA050188965

PATIENT
  Age: 27 Year
  Sex: Female

DRUGS (2)
  1. HUMULIN N [Suspect]
     Indication: DIABETES MELLITUS
     Dosage: 30 U IN THE EVENING
     Dates: start: 19840101
  2. HUMULIN R [Suspect]
     Indication: DIABETES MELLITUS

REACTIONS (5)
  - DIABETES MELLITUS INADEQUATE CONTROL [None]
  - DIABETIC KETOACIDOSIS [None]
  - DRUG EFFECT DECREASED [None]
  - HYSTERECTOMY [None]
  - POST PROCEDURAL COMPLICATION [None]
